FAERS Safety Report 20701112 (Version 1)
Quarter: 2022Q2

REPORT INFORMATION
  Report Type: Spontaneous
  Country: US (occurrence: None)
  Receive Date: 20220411
  Receipt Date: 20220411
  Transmission Date: 20220721
  Serious: Yes (Disabling)
  Sender: FDA-Public Use
  Company Number: None

PATIENT
  Age: 40 Year
  Sex: Female
  Weight: 54.88 kg

DRUGS (1)
  1. KYLEENA [Suspect]
     Active Substance: LEVONORGESTREL

REACTIONS (22)
  - Muscle spasms [None]
  - Abdominal distension [None]
  - Headache [None]
  - Nausea [None]
  - Pelvic pain [None]
  - Musculoskeletal chest pain [None]
  - Dysuria [None]
  - Urinary retention [None]
  - Night sweats [None]
  - Migraine [None]
  - Weight increased [None]
  - Vaginal haemorrhage [None]
  - Back pain [None]
  - Abdominal pain [None]
  - Irritability [None]
  - Anxiety [None]
  - Dyspareunia [None]
  - Fatigue [None]
  - Libido decreased [None]
  - Pruritus [None]
  - Pollakiuria [None]
  - Sleep disorder [None]
